FAERS Safety Report 7471102-0 (Version None)
Quarter: 2011Q2

REPORT INFORMATION
  Report Type: 
  Country: None (occurrence: None)
  Receive Date: 20110510
  Receipt Date: 20110426
  Transmission Date: 20111010
  Serious: Yes (Hospitalization, Other)
  Sender: FDA-Public Use
  Company Number: US-ELI_LILLY_AND_COMPANY-US201004000243

PATIENT
  Sex: Female

DRUGS (9)
  1. FORTEO [Suspect]
     Indication: OSTEOPOROSIS
     Dosage: 20 UG, DAILY (1/D)
     Route: 065
  2. LOTREL [Concomitant]
     Indication: BLOOD PRESSURE
  3. OXYCONTIN [Concomitant]
  4. FORTEO [Suspect]
     Dosage: 20 UG, DAILY (1/D)
     Route: 065
  5. ANALGESICS [Concomitant]
     Indication: ARTHRITIS
  6. LEXAPRO [Concomitant]
  7. FORTEO [Suspect]
     Dosage: 20 UG, DAILY (1/D)
     Route: 065
  8. FORTEO [Suspect]
     Dosage: 20 UG, DAILY (1/D)
     Route: 065
  9. THYROID THERAPY [Concomitant]
     Indication: THYROID DISORDER

REACTIONS (13)
  - VOMITING [None]
  - VISUAL IMPAIRMENT [None]
  - TENDON RUPTURE [None]
  - HAND FRACTURE [None]
  - CATARACT [None]
  - VIRAL INFECTION [None]
  - DRUG DOSE OMISSION [None]
  - HEAD INJURY [None]
  - MALAISE [None]
  - PYREXIA [None]
  - INJECTION SITE HAEMATOMA [None]
  - GAIT DISTURBANCE [None]
  - FALL [None]
